FAERS Safety Report 9359334 (Version 1)
Quarter: 2013Q2

REPORT INFORMATION
  Report Type: Spontaneous
  Country: CA (occurrence: None)
  Receive Date: 20130618
  Receipt Date: 20130618
  Transmission Date: 20140414
  Serious: Yes (Other)
  Sender: FDA-Public Use
  Company Number: SYM-2013-04518

PATIENT
  Age: 56 Year
  Sex: Female

DRUGS (7)
  1. WELLBUTRIN XL [Suspect]
     Indication: DEPRESSION
     Route: 048
     Dates: start: 2008
  2. WELLBUTRIN XL [Suspect]
     Indication: MENTAL DISORDER
     Route: 048
     Dates: start: 2008
  3. SALAGEN (PILOCARPINE HYDROCHLORIDE) (PILOCARPINE HYDROCHLORIDE) [Concomitant]
  4. SYNTHROID (LEVOTHYROXINE SODIUM) (LEVOTHYROXINE SODIUM) [Concomitant]
  5. TEMAZEPAM (TEMAZEPAM) (TEMAZEPAM) [Concomitant]
  6. CLONAZEPAM (CLONAZEPAM) (CLONAZEPAM) [Concomitant]
  7. LORAZEPAM (LORAZEPAM) (LORAZEPAM) [Concomitant]

REACTIONS (1)
  - Gambling [None]
